FAERS Safety Report 12993663 (Version 1)
Quarter: 2016Q4

REPORT INFORMATION
  Report Type: Spontaneous
  Country: US (occurrence: US)
  Receive Date: 20161201
  Receipt Date: 20161201
  Transmission Date: 20170207
  Serious: No
  Sender: FDA-Public Use
  Company Number: None

PATIENT
  Age: 35 Year
  Sex: Female

DRUGS (6)
  1. COPAXONE [Suspect]
     Active Substance: GLATIRAMER ACETATE
     Indication: INSOMNIA
  2. COPAXONE [Suspect]
     Active Substance: GLATIRAMER ACETATE
     Indication: ANAEMIA
  3. COPAXONE [Suspect]
     Active Substance: GLATIRAMER ACETATE
     Indication: MULTIPLE SCLEROSIS
  4. COPAXONE [Suspect]
     Active Substance: GLATIRAMER ACETATE
     Indication: IMPAIRED GASTRIC EMPTYING
  5. COPAXONE [Suspect]
     Active Substance: GLATIRAMER ACETATE
     Indication: CERVICAL RADICULOPATHY
  6. COPAXONE [Suspect]
     Active Substance: GLATIRAMER ACETATE
     Indication: AUTOIMMUNE THYROIDITIS

REACTIONS (1)
  - Injection site erythema [None]

NARRATIVE: CASE EVENT DATE: 20161118
